FAERS Safety Report 9627111 (Version 6)
Quarter: 2014Q1

REPORT INFORMATION
  Report Type: Spontaneous
  Country: US (occurrence: US)
  Receive Date: 20131016
  Receipt Date: 20140120
  Transmission Date: 20141002
  Serious: Yes (Death, Hospitalization, Other)
  Sender: FDA-Public Use
  Company Number: PHEH2010US003948

PATIENT
  Age: 85 Year
  Sex: Male

DRUGS (27)
  1. ZOMETA [Suspect]
     Indication: PLASMA CELL MYELOMA
     Dosage: 4 MG, QMO
     Route: 042
  2. PREDNISONE [Concomitant]
  3. ALKERAN [Concomitant]
  4. PLAVIX [Concomitant]
  5. ASPIRIN ^BAYER^ [Concomitant]
  6. ATENOLOL [Concomitant]
  7. IRON [Concomitant]
  8. ZOCOR ^DIECKMANN^ [Concomitant]
  9. TERAZOSIN [Concomitant]
  10. ZANTAC [Concomitant]
  11. LASIX [Concomitant]
  12. POTASSIUM [Concomitant]
  13. NIFEREX [Concomitant]
     Dosage: 150 MG, QD
  14. FOLIC ACID [Concomitant]
     Dosage: 1 MG, QD
  15. HYTRIN [Concomitant]
     Dosage: 2 MG, UNK
  16. NITROGLYCERIN [Concomitant]
     Dosage: 40 MG, UNK
  17. TENORMIN [Concomitant]
     Dosage: 50 MG, BID
  18. PROCAN [Concomitant]
     Dosage: 1000 MG, BID
  19. DEMADEX [Concomitant]
     Dosage: 20 MG ONE Q.D. IN THE A.M.
  20. MICRO-K [Concomitant]
     Dosage: 10 MEQ Q.D. IN THE A.M.
  21. CIPROFLOXACIN [Concomitant]
  22. DOCUSATE [Concomitant]
  23. GABAPENTIN [Concomitant]
  24. TYLENOL [Concomitant]
     Dosage: 600 MG, QID
  25. ZOFRAN [Concomitant]
     Dosage: 4 MG, UNK
  26. MAALOX [Concomitant]
     Dosage: 30 ML, UNK
  27. SENOKOT [Concomitant]

REACTIONS (147)
  - Death [Fatal]
  - Pneumonia [Unknown]
  - Intervertebral discitis [Unknown]
  - Back pain [Unknown]
  - Lumbar spinal stenosis [Unknown]
  - Atelectasis [Unknown]
  - Pleural effusion [Unknown]
  - Herpes zoster [Unknown]
  - Osteonecrosis of jaw [Unknown]
  - General physical health deterioration [Unknown]
  - Pain [Unknown]
  - Loose tooth [Unknown]
  - Pathological fracture [Unknown]
  - Osteomyelitis [Unknown]
  - Exposed bone in jaw [Unknown]
  - Pain in jaw [Unknown]
  - Anxiety [Unknown]
  - Anhedonia [Unknown]
  - Disability [Unknown]
  - Tenderness [Unknown]
  - Infection [Unknown]
  - Osteitis [Unknown]
  - Bone lesion [Unknown]
  - Post herpetic neuralgia [Unknown]
  - Osteolysis [Unknown]
  - Spinal osteoarthritis [Unknown]
  - Spinal compression fracture [Unknown]
  - Intervertebral disc protrusion [Unknown]
  - Intervertebral disc degeneration [Unknown]
  - Urinary tract infection [Unknown]
  - Arthritis [Unknown]
  - Arthralgia [Unknown]
  - Influenza [Unknown]
  - Cardiomegaly [Unknown]
  - Aortic calcification [Unknown]
  - Osteopenia [Unknown]
  - Gingival disorder [Unknown]
  - Oesophagitis [Unknown]
  - Arrhythmia [Unknown]
  - Myocardial infarction [Unknown]
  - Gout [Unknown]
  - Pharyngeal oedema [Unknown]
  - Arteriosclerosis [Unknown]
  - Osteoarthritis [Unknown]
  - Cataract [Unknown]
  - Confusional state [Unknown]
  - Coronary artery disease [Unknown]
  - Thrombocytopenia [Unknown]
  - Hypertension [Unknown]
  - Delirium [Unknown]
  - Constipation [Unknown]
  - Joint swelling [Unknown]
  - Gastrooesophageal reflux disease [Unknown]
  - Dyspnoea [Unknown]
  - Peripheral vascular disorder [Unknown]
  - Sinusitis [Unknown]
  - Asthma [Unknown]
  - Chest pain [Unknown]
  - Angina unstable [Unknown]
  - Hyperglycaemia [Unknown]
  - Pancytopenia [Unknown]
  - Renal failure [Unknown]
  - Hypokalaemia [Unknown]
  - Hypomagnesaemia [Unknown]
  - Asthenia [Unknown]
  - Incontinence [Unknown]
  - Neutropenia [Unknown]
  - Dysarthria [Unknown]
  - Aphasia [Unknown]
  - Dysphagia [Unknown]
  - Bacteraemia [Unknown]
  - Metabolic encephalopathy [Unknown]
  - Aplastic anaemia [Unknown]
  - Aortic dilatation [Unknown]
  - Granulomatous liver disease [Unknown]
  - Splenic granuloma [Unknown]
  - Proteinuria [Unknown]
  - Hypercholesterolaemia [Unknown]
  - Type 2 diabetes mellitus [Unknown]
  - Lethargy [Unknown]
  - Bone cancer [Unknown]
  - Neuropathy peripheral [Unknown]
  - Cardiac failure congestive [Unknown]
  - Amnesia [Unknown]
  - Hiatus hernia [Unknown]
  - Diverticulum [Unknown]
  - Duodenitis [Unknown]
  - Benign prostatic hyperplasia [Unknown]
  - Dyslipidaemia [Unknown]
  - Deformity [Unknown]
  - Bone marrow oedema [Unknown]
  - Streptococcal infection [Unknown]
  - Benign bone neoplasm [Unknown]
  - Drug hypersensitivity [Unknown]
  - Intestinal obstruction [Unknown]
  - Diarrhoea [Unknown]
  - Gastrointestinal haemorrhage [Unknown]
  - Hypoaesthesia oral [Unknown]
  - Primary sequestrum [Unknown]
  - Purulent discharge [Unknown]
  - Tooth loss [Unknown]
  - Cellulitis [Unknown]
  - Osteoporosis [Unknown]
  - Fall [Unknown]
  - Coordination abnormal [Unknown]
  - Extrasystoles [Unknown]
  - Dysgeusia [Unknown]
  - Hearing impaired [Unknown]
  - Periodontal disease [Unknown]
  - Plasma cell myeloma recurrent [Unknown]
  - Tooth deposit [Unknown]
  - Dental plaque [Unknown]
  - Bone loss [Unknown]
  - Lip neoplasm malignant stage unspecified [Unknown]
  - Gait disturbance [Unknown]
  - Plantar fasciitis [Unknown]
  - Exostosis [Unknown]
  - Pharyngitis [Unknown]
  - Upper respiratory tract infection [Unknown]
  - Muscle strain [Unknown]
  - Dysuria [Unknown]
  - Peripheral ischaemia [Unknown]
  - Gastritis [Unknown]
  - Tachycardia [Unknown]
  - Jaw fracture [Unknown]
  - Staphylococcal bacteraemia [Unknown]
  - Oedema peripheral [Unknown]
  - Insomnia [Unknown]
  - Leukocytosis [Unknown]
  - Cough [Unknown]
  - Depression [Unknown]
  - Fatigue [Unknown]
  - Hypotension [Unknown]
  - Progressive supranuclear palsy [Unknown]
  - Spinal pain [Unknown]
  - Vertigo [Unknown]
  - Respiratory distress [Unknown]
  - Grimacing [Unknown]
  - Malignant melanoma [Unknown]
  - Second primary malignancy [Unknown]
  - Basal cell carcinoma [Unknown]
  - Squamous cell carcinoma of skin [Unknown]
  - Arteriosclerosis coronary artery [Unknown]
  - Paralysis [Unknown]
  - Haematochezia [Unknown]
  - Dehydration [Unknown]
  - Leukopenia [Unknown]
